FAERS Safety Report 21156246 (Version 1)
Quarter: 2022Q3

REPORT INFORMATION
  Report Type: Spontaneous
  Country: US (occurrence: US)
  Receive Date: 20220801
  Receipt Date: 20220801
  Transmission Date: 20221026
  Serious: No
  Sender: FDA-Public Use
  Company Number: US-PADAGIS-2022PAD00140

PATIENT

DRUGS (2)
  1. CICLOPIROX [Suspect]
     Active Substance: CICLOPIROX
     Indication: Product used for unknown indication
     Dosage: UNK
     Dates: start: 202205
  2. CICLOPIROX [Suspect]
     Active Substance: CICLOPIROX
     Indication: Pruritus
     Dosage: UNK
     Route: 065
     Dates: start: 202204

REACTIONS (3)
  - Gout [Unknown]
  - Concomitant disease aggravated [Unknown]
  - Erythema [Unknown]
